FAERS Safety Report 17589280 (Version 2)
Quarter: 2021Q2

REPORT INFORMATION
  Report Type: Spontaneous
  Country: US (occurrence: US)
  Receive Date: 20200327
  Receipt Date: 20210413
  Transmission Date: 20210716
  Serious: No
  Sender: FDA-Public Use
  Company Number: US-ALLERGAN-1917679US

PATIENT
  Sex: Female

DRUGS (2)
  1. OTHER UNSPECIFED PRODUCTS [Concomitant]
  2. LATISSE [Suspect]
     Active Substance: BIMATOPROST
     Indication: GROWTH OF EYELASHES
     Dosage: UNK UNK, QHS
     Route: 061

REACTIONS (3)
  - Wrong technique in product usage process [Unknown]
  - Erythema of eyelid [Unknown]
  - Ocular hyperaemia [Unknown]
